FAERS Safety Report 21125685 (Version 2)
Quarter: 2022Q3

REPORT INFORMATION
  Report Type: Spontaneous
  Country: US (occurrence: US)
  Receive Date: 20220725
  Receipt Date: 20220728
  Transmission Date: 20221027
  Serious: Yes (Life-Threatening, Other)
  Sender: FDA-Public Use
  Company Number: US-PFIZER INC-PV202200022515

PATIENT
  Age: 28 Year
  Sex: Male

DRUGS (2)
  1. EPINEPHRINE [Suspect]
     Active Substance: EPINEPHRINE
     Indication: Swollen tongue
     Dosage: 0.5 MG
     Route: 042
  2. DIPHENHYDRAMINE HYDROCHLORIDE [Concomitant]
     Active Substance: DIPHENHYDRAMINE HYDROCHLORIDE
     Indication: Swollen tongue
     Dosage: 25 MG
     Route: 042

REACTIONS (4)
  - Wrong technique in product usage process [Recovering/Resolving]
  - Iatrogenic injury [Recovering/Resolving]
  - Arteriospasm coronary [Recovering/Resolving]
  - Acute myocardial infarction [Recovering/Resolving]
